FAERS Safety Report 7050900-1 (Version None)
Quarter: 2010Q4

REPORT INFORMATION
  Report Type: 
  Country: None (occurrence: None)
  Receive Date: 20101018
  Receipt Date: 20101018
  Transmission Date: 20110411
  Serious: Yes (Other)
  Sender: FDA-Public Use
  Company Number: None

PATIENT
  Age: 58 Year
  Sex: Male
  Weight: 90.7194 kg

DRUGS (1)
  1. METHYLIN [Suspect]
     Indication: ATTENTION DEFICIT/HYPERACTIVITY DISORDER
     Dosage: 20MG 2 A DAY PO
     Route: 048
     Dates: start: 20100912, end: 20101014

REACTIONS (3)
  - DRUG EFFECT DECREASED [None]
  - PRODUCT FORMULATION ISSUE [None]
  - PRODUCT SUBSTITUTION ISSUE [None]
